FAERS Safety Report 6474836-X (Version None)
Quarter: 2009Q4

REPORT INFORMATION
  Report Type: 
  Country: None (occurrence: None)
  Receive Date: 20091204
  Receipt Date: 20090218
  Transmission Date: 20100525
  Serious: Yes (Hospitalization)
  Sender: FDA-Public Use
  Company Number: US-ELI_LILLY_AND_COMPANY-US200902004478

PATIENT
  Sex: Male
  Weight: 111.11 kg

DRUGS (10)
  1. ZYPREXA [Suspect]
     Dosage: 15 MG, UNK
     Dates: start: 20010101, end: 20051205
  2. PROZAC [Concomitant]
  3. SEROQUEL [Concomitant]
     Dates: start: 20010101
  4. PAROXETINE [Concomitant]
  5. BUSPIRONE HCL [Concomitant]
  6. AMBIEN [Concomitant]
  7. WELLBUTRIN XL [Concomitant]
     Dosage: 150 MG, UNK
  8. ARIPIPRAZOLE [Concomitant]
     Dates: start: 20010101
  9. CLOZAPINE [Concomitant]
     Dates: start: 20010101, end: 20020101
  10. ZIPRASIDONE HCL [Concomitant]
     Dates: start: 20010101

REACTIONS (13)
  - ADVERSE EVENT [None]
  - AMNESIA [None]
  - CHROMATURIA [None]
  - DIABETES MELLITUS [None]
  - HYPERGLYCAEMIA [None]
  - HYPERTENSION [None]
  - HYPOGLYCAEMIA [None]
  - INCOHERENT [None]
  - INSULIN RESISTANCE [None]
  - MUSCULOSKELETAL STIFFNESS [None]
  - MYOCARDIAL ISCHAEMIA [None]
  - VISION BLURRED [None]
  - WEIGHT INCREASED [None]
